FAERS Safety Report 9557015 (Version 1)
Quarter: 2013Q3

REPORT INFORMATION
  Report Type: Not Available
  Country: US (occurrence: US)
  Receive Date: 20130926
  Receipt Date: 20130926
  Transmission Date: 20140515
  Serious: No
  Sender: FDA-Public Use
  Company Number: US-TARO-2012P1053652

PATIENT
  Age: 11 Year
  Sex: Female
  Weight: 65.77 kg

DRUGS (2)
  1. OVIDE TOPICAL LOTION 0.5% [Suspect]
     Indication: LICE INFESTATION
     Route: 061
     Dates: start: 2008, end: 2008
  2. MULTIVITAMIN [Concomitant]

REACTIONS (5)
  - Dry skin [Not Recovered/Not Resolved]
  - Skin exfoliation [Not Recovered/Not Resolved]
  - Pruritus [Not Recovered/Not Resolved]
  - Seborrhoeic dermatitis [Not Recovered/Not Resolved]
  - Alopecia [Not Recovered/Not Resolved]
